FAERS Safety Report 11121044 (Version 1)
Quarter: 2015Q2

REPORT INFORMATION
  Report Type: Spontaneous
  Country: US (occurrence: None)
  Receive Date: 20150515
  Receipt Date: 20150515
  Transmission Date: 20150821
  Serious: Yes (Other)
  Sender: FDA-Public Use
  Company Number: FK201502183

PATIENT
  Age: 66 Year
  Sex: Male

DRUGS (2)
  1. METOPROLOL INJECTION (MANUFACTURER UNKNOWN) (METOPROLOL TARTRATE) (METOPROLOL TARTRATE ) [Suspect]
     Active Substance: METOPROLOL
     Indication: MYOCARDIAL ISCHAEMIA
  2. DOFETILIDE [Suspect]
     Active Substance: DOFETILIDE
     Indication: ATRIAL FIBRILLATION

REACTIONS (5)
  - Torsade de pointes [None]
  - Heart rate decreased [None]
  - Electrocardiogram QT prolonged [None]
  - Drug interaction [None]
  - Ventricular fibrillation [None]
